FAERS Safety Report 5588083-7 (Version None)
Quarter: 2008Q1

REPORT INFORMATION
  Report Type: 
  Country: None (occurrence: None)
  Receive Date: 20080111
  Receipt Date: 20080102
  Transmission Date: 20080703
  Serious: Yes (Death, Hospitalization)
  Sender: FDA-Public Use
  Company Number: US-NOVOPROD-265082

PATIENT
  Age: 40 Year
  Sex: Male
  Weight: 58 kg

DRUGS (4)
  1. PRANDIN [Suspect]
     Indication: TYPE 2 DIABETES MELLITUS
     Dosage: .5 MG, TID
  2. TRIAMTERENE [Concomitant]
     Dosage: 100 MG, QD
  3. OMEPRAZOLE [Concomitant]
     Dosage: 40 MG, QD
  4. DIGOXIN [Concomitant]
     Dosage: .1 MG, QD

REACTIONS (3)
  - LYMPHANGIECTASIA INTESTINAL [None]
  - PROTEIN-LOSING GASTROENTEROPATHY [None]
  - SEPSIS [None]
